FAERS Safety Report 7308236-7 (Version None)
Quarter: 2011Q1

REPORT INFORMATION
  Report Type: 
  Country: None (occurrence: None)
  Receive Date: 20110223
  Receipt Date: 20110214
  Transmission Date: 20110831
  Serious: Yes (Death)
  Sender: FDA-Public Use
  Company Number: A0687225A

PATIENT
  Sex: Female

DRUGS (5)
  1. BENADRYL [Concomitant]
     Route: 064
  2. TRAZODONE HCL [Concomitant]
     Route: 064
     Dates: start: 19990104, end: 19991217
  3. VITAMIN TAB [Concomitant]
     Route: 064
  4. PROZAC [Concomitant]
     Route: 064
     Dates: start: 19990101
  5. PAXIL [Suspect]
     Indication: DEPRESSION
     Dosage: 30MG PER DAY
     Route: 064
     Dates: start: 19980501, end: 20000301

REACTIONS (2)
  - STILLBIRTH [None]
  - DRUG EXPOSURE DURING PREGNANCY [None]
